FAERS Safety Report 14631283 (Version 2)
Quarter: 2018Q2

REPORT INFORMATION
  Report Type: Spontaneous
  Country: HU (occurrence: HU)
  Receive Date: 20180313
  Receipt Date: 20180406
  Transmission Date: 20180711
  Serious: Yes (Other)
  Sender: FDA-Public Use
  Company Number: HU-PFIZER INC-2018099486

PATIENT
  Age: 61 Year
  Sex: Female

DRUGS (3)
  1. KLION /00012501/ [Suspect]
     Active Substance: METRONIDAZOLE
     Indication: INFECTION
     Dosage: UNK
  2. CEFTRIAXONE KABI [Suspect]
     Active Substance: CEFTRIAXONE
     Indication: PERITONITIS
     Dosage: UNK
     Route: 042
  3. CEFTRIAXONE KABI [Suspect]
     Active Substance: CEFTRIAXONE
     Indication: COLITIS

REACTIONS (6)
  - Ascites [Recovered/Resolved]
  - Hydrothorax [Recovered/Resolved]
  - Atrial fibrillation [Recovered/Resolved]
  - Malabsorption [Recovered/Resolved]
  - Hypoalbuminaemia [Recovered/Resolved]
  - Candida infection [Unknown]
